FAERS Safety Report 6435622-X (Version None)
Quarter: 2009Q4

REPORT INFORMATION
  Report Type: 
  Country: None (occurrence: None)
  Receive Date: 20091111
  Receipt Date: 20091102
  Transmission Date: 20100525
  Serious: Yes (Other)
  Sender: FDA-Public Use
  Company Number: JP-JNJFOC-20091101162

PATIENT
  Age: 54 Year
  Sex: Female

DRUGS (7)
  1. ITRIZOLE [Suspect]
     Indication: PROPHYLAXIS
     Route: 048
     Dates: start: 20090930
  2. ZOVIRAX [Concomitant]
     Route: 048
  3. MUCOSTA [Concomitant]
     Route: 048
  4. ISODINE [Concomitant]
     Route: 002
  5. ALOSITOL [Concomitant]
     Route: 048
  6. BIOFERMIN R [Concomitant]
     Route: 048
  7. CRAVIT [Concomitant]
     Route: 048

REACTIONS (1)
  - ATRIOVENTRICULAR BLOCK [None]
